FAERS Safety Report 7054860-9 (Version None)
Quarter: 2010Q4

REPORT INFORMATION
  Report Type: 
  Country: None (occurrence: None)
  Receive Date: 20101021
  Receipt Date: 20101012
  Transmission Date: 20110411
  Serious: No
  Sender: FDA-Public Use
  Company Number: US-BIOGENIDEC-2010BI008063

PATIENT
  Age: 50 Year
  Sex: Female

DRUGS (6)
  1. TYSABRI [Suspect]
     Indication: MULTIPLE SCLEROSIS
     Route: 042
     Dates: start: 20090305, end: 20100501
  2. LISINOPRIL [Concomitant]
     Indication: HYPERTENSION
  3. PREVACID [Concomitant]
     Indication: DYSPEPSIA
     Dates: start: 20080101
  4. PREVACID [Concomitant]
     Indication: GASTRIC DISORDER
     Dates: start: 20080101
  5. FUROSEMIDE [Concomitant]
     Indication: OEDEMA PERIPHERAL
     Dates: start: 19820101
  6. PREDNISONE TAB [Concomitant]
     Dates: start: 20100114

REACTIONS (18)
  - ASTHENIA [None]
  - BLOOD GLUCOSE INCREASED [None]
  - CARDIOVASCULAR DISORDER [None]
  - DIABETES MELLITUS [None]
  - FATIGUE [None]
  - FEELING ABNORMAL [None]
  - GENERAL SYMPTOM [None]
  - GLYCOSYLATED HAEMOGLOBIN INCREASED [None]
  - HEADACHE [None]
  - HYPOTENSION [None]
  - MULTIPLE SCLEROSIS [None]
  - MULTIPLE SCLEROSIS RELAPSE [None]
  - OEDEMA PERIPHERAL [None]
  - OROPHARYNGEAL PAIN [None]
  - PALPITATIONS [None]
  - RHINORRHOEA [None]
  - SENSORY DISTURBANCE [None]
  - SOMNOLENCE [None]
